FAERS Safety Report 18735647 (Version 3)
Quarter: 2021Q1

REPORT INFORMATION
  Report Type: Report from Study
  Country: US (occurrence: US)
  Receive Date: 20210113
  Receipt Date: 20210225
  Transmission Date: 20210419
  Serious: Yes (Congenital Anomaly, Other)
  Sender: FDA-Public Use
  Company Number: US-VIIV HEALTHCARE LIMITED-US2021GSK007065

PATIENT

DRUGS (1)
  1. ABACAVIRSULPHATE+DOLUTEGRAVIR+LAMIVUDINE [Suspect]
     Active Substance: ABACAVIR SULFATE\DOLUTEGRAVIR SODIUM\LAMIVUDINE
     Indication: HIV INFECTION
     Dosage: 950 MG, QD
     Route: 064
     Dates: start: 20160701

REACTIONS (4)
  - Trisomy 21 [Unknown]
  - Congenital choroid plexus cyst [Unknown]
  - Urinary tract malformation [Unknown]
  - Foetal exposure during pregnancy [Unknown]
